FAERS Safety Report 11127211 (Version 1)
Quarter: 2015Q2

REPORT INFORMATION
  Report Type: Spontaneous
  Country: US (occurrence: None)
  Receive Date: 20150520
  Receipt Date: 20150520
  Transmission Date: 20150821
  Serious: Yes (Disabling, Other)
  Sender: FDA-Public Use
  Company Number: None

PATIENT
  Age: 73 Year
  Sex: Female
  Weight: 58.06 kg

DRUGS (9)
  1. PROBIOTICS [Concomitant]
     Active Substance: PROBIOTICS NOS
  2. FISH OIL [Concomitant]
     Active Substance: FISH OIL
  3. ATENOLOL. [Concomitant]
     Active Substance: ATENOLOL
  4. CENTRUM MUL-VIT [Concomitant]
  5. SYNTROID [Concomitant]
  6. OMEPRAZOLE. [Concomitant]
     Active Substance: OMEPRAZOLE
  7. CALCIUM [Concomitant]
     Active Substance: CALCIUM
  8. LEVOFLOXACIN LUPIN PHARMACEUTICAL [Suspect]
     Active Substance: LEVOFLOXACIN
     Indication: SINUSITIS
     Dosage: 500MG?10 PILLS?1 X DAILY ?MOUTH
     Route: 048
     Dates: start: 20150209, end: 20150216
  9. LEVOFLOXACIN LUPIN PHARMACEUTICAL [Suspect]
     Active Substance: LEVOFLOXACIN
     Indication: URINARY TRACT INFECTION
     Dosage: 500MG?10 PILLS?1 X DAILY ?MOUTH
     Route: 048
     Dates: start: 20150209, end: 20150216

REACTIONS (4)
  - Fatigue [None]
  - Vision blurred [None]
  - Pain [None]
  - Arthralgia [None]

NARRATIVE: CASE EVENT DATE: 20150213
